FAERS Safety Report 4469231-9 (Version None)
Quarter: 2004Q4

REPORT INFORMATION
  Report Type: 
  Country: None (occurrence: None)
  Receive Date: 20041008
  Receipt Date: 20040930
  Transmission Date: 20050328
  Serious: Yes (Other)
  Sender: FDA-Public Use
  Company Number: 200413683FR

PATIENT
  Sex: Male

DRUGS (3)
  1. LANTUS [Suspect]
     Indication: DIABETES MELLITUS NON-INSULIN-DEPENDENT
     Route: 058
  2. MODOPAR [Concomitant]
     Indication: PARKINSON'S DISEASE
     Route: 048
  3. UNKNOWN DRUG [Concomitant]

REACTIONS (1)
  - PEMPHIGOID [None]
